FAERS Safety Report 11152543 (Version 1)
Quarter: 2015Q2

REPORT INFORMATION
  Report Type: Spontaneous
  Country: KR (occurrence: KR)
  Receive Date: 20150601
  Receipt Date: 20150601
  Transmission Date: 20150821
  Serious: Yes (Hospitalization, Other)
  Sender: FDA-Public Use
  Company Number: KR-ACTAVIS-2015-10624

PATIENT
  Sex: Male

DRUGS (2)
  1. SUCRALFATE (UNKNOWN) [Suspect]
     Active Substance: SUCRALFATE
     Indication: GASTROINTESTINAL HAEMORRHAGE
     Dosage: 4 G, DAILY
     Route: 048
     Dates: start: 201503, end: 201504
  2. SUCRALFATE (UNKNOWN) [Suspect]
     Active Substance: SUCRALFATE
     Dosage: 6 G, DAILY
     Route: 048
     Dates: start: 201408, end: 201503

REACTIONS (1)
  - Syncope [Recovering/Resolving]

NARRATIVE: CASE EVENT DATE: 201504
